FAERS Safety Report 5028916-6 (Version None)
Quarter: 2006Q2

REPORT INFORMATION
  Report Type: 
  Country: None (occurrence: None)
  Receive Date: 20060619
  Receipt Date: 20060608
  Transmission Date: 20061013
  Serious: Yes (Hospitalization)
  Sender: FDA-Public Use
  Company Number: FR-GLAXOSMITHKLINE-B0426752A

PATIENT
  Age: 60 Year
  Sex: Male
  Weight: 95 kg

DRUGS (7)
  1. AVANDAMET [Suspect]
     Indication: DIABETES MELLITUS NON-INSULIN-DEPENDENT
     Dosage: 1TAB TWICE PER DAY
     Route: 048
     Dates: start: 20060101, end: 20060513
  2. ZOCOR [Suspect]
     Dosage: 40MG PER DAY
     Route: 048
     Dates: end: 20060513
  3. ESIDRIX [Concomitant]
     Indication: ESSENTIAL HYPERTENSION
     Dosage: 12MG PER DAY
     Route: 048
  4. TRIATEC [Concomitant]
     Indication: ESSENTIAL HYPERTENSION
     Dosage: 10MG PER DAY
     Route: 048
  5. MONO-TILDIEM [Concomitant]
     Indication: ESSENTIAL HYPERTENSION
     Dosage: 1UNIT PER DAY
     Route: 048
  6. AERIUS [Concomitant]
     Indication: HYPERSENSITIVITY
     Dosage: .5MG PER DAY
     Route: 048
  7. LEVOTHYROX [Concomitant]
     Route: 065

REACTIONS (7)
  - ABDOMINAL PAIN [None]
  - ALANINE AMINOTRANSFERASE INCREASED [None]
  - ASPARTATE AMINOTRANSFERASE INCREASED [None]
  - ASTHENIA [None]
  - GAMMA-GLUTAMYLTRANSFERASE INCREASED [None]
  - PYREXIA [None]
  - RASH MACULO-PAPULAR [None]
